FAERS Safety Report 20424091 (Version 4)
Quarter: 2024Q1

REPORT INFORMATION
  Report Type: Spontaneous
  Country: JP (occurrence: JP)
  Receive Date: 20220203
  Receipt Date: 20240125
  Transmission Date: 20240409
  Serious: Yes (Death, Other)
  Sender: FDA-Public Use
  Company Number: JP-TAKEDA-2021TJP015553

PATIENT
  Age: 66 Year
  Sex: Male

DRUGS (2)
  1. CABOMETYX [Suspect]
     Active Substance: CABOZANTINIB S-MALATE
     Indication: Renal cell carcinoma
     Dosage: 40 MG
     Route: 048
     Dates: start: 20210216
  2. CABOMETYX [Suspect]
     Active Substance: CABOZANTINIB S-MALATE
     Dosage: 20 MG
     Route: 048
     Dates: start: 202103

REACTIONS (10)
  - Ascites [Fatal]
  - Pleural effusion [Fatal]
  - General physical health deterioration [Fatal]
  - Blood albumin decreased [Recovering/Resolving]
  - Neoplasm progression [Fatal]
  - Hypothyroidism [Recovering/Resolving]
  - Renal cell carcinoma [Fatal]
  - Oedema [Recovering/Resolving]
  - Rash [Unknown]
  - Proteinuria [Unknown]

NARRATIVE: CASE EVENT DATE: 20210301
